FAERS Safety Report 18247136 (Version 2)
Quarter: 2020Q3

REPORT INFORMATION
  Report Type: Spontaneous
  Country: IT (occurrence: IT)
  Receive Date: 20200909
  Receipt Date: 20200917
  Transmission Date: 20201103
  Serious: Yes (Other)
  Sender: FDA-Public Use
  Company Number: IT-ACCORD-199437

PATIENT
  Age: 48 Year
  Sex: Male

DRUGS (1)
  1. PRAVASTATIN. [Suspect]
     Active Substance: PRAVASTATIN
     Indication: TYPE IIB HYPERLIPIDAEMIA

REACTIONS (3)
  - Myositis [Unknown]
  - Fall [Unknown]
  - Drug intolerance [Unknown]
